FAERS Safety Report 7658420-8 (Version None)
Quarter: 2011Q3

REPORT INFORMATION
  Report Type: 
  Country: None (occurrence: None)
  Receive Date: 20110805
  Receipt Date: 20110729
  Transmission Date: 20111222
  Serious: Yes (Hospitalization, Other)
  Sender: FDA-Public Use
  Company Number: FR-ASTELLAS-2011EU004182

PATIENT
  Sex: Female
  Weight: 66 kg

DRUGS (7)
  1. XANAX [Concomitant]
     Dosage: 1 DF, TOTAL DOSE
     Route: 065
  2. CYMBALTA [Concomitant]
     Dosage: 1 DF, UNKNOWN/D
     Route: 048
     Dates: start: 20100101
  3. NEXIUM [Concomitant]
     Dosage: 1 DF, UNKNOWN/D
     Route: 048
     Dates: start: 20091101
  4. EZETIMIBE [Concomitant]
     Dosage: 1 DF, UNKNOWN/D
     Route: 048
     Dates: start: 20091115
  5. ASPIRIN [Concomitant]
     Dosage: 1 DF, UNKNOWN/D
     Route: 048
     Dates: start: 20100501
  6. VESICARE [Suspect]
     Indication: NEUROGENIC BLADDER
     Dosage: 1 DF, UID/QD
     Route: 048
     Dates: start: 20110605, end: 20110628
  7. LAMICTAL [Concomitant]
     Dosage: 1 DF, UNKNOWN/D
     Route: 048
     Dates: start: 20110101

REACTIONS (7)
  - ABDOMINAL PAIN UPPER [None]
  - PALPITATIONS [None]
  - AGITATION [None]
  - DRY MOUTH [None]
  - EXOPHTHALMOS [None]
  - TREMOR [None]
  - HALLUCINATION [None]
